FAERS Safety Report 13982617 (Version 1)
Quarter: 2017Q3

REPORT INFORMATION
  Report Type: Spontaneous
  Country: US (occurrence: US)
  Receive Date: 20170918
  Receipt Date: 20170918
  Transmission Date: 20171128
  Serious: No
  Sender: FDA-Public Use
  Company Number: US-LEADIANT BIOSCIENCES INC-2016STPI000776

PATIENT
  Age: 43 Year
  Sex: Male

DRUGS (16)
  1. VIMPAT [Concomitant]
     Active Substance: LACOSAMIDE
     Route: 048
  2. TAMULOSIN [Concomitant]
     Active Substance: TAMSULOSIN
     Route: 048
  3. MONTELUKAST [Suspect]
     Active Substance: MONTELUKAST SODIUM
  4. LOSARTAN. [Concomitant]
     Active Substance: LOSARTAN
     Route: 048
  5. VENTOLIN [Concomitant]
     Active Substance: ALBUTEROL SULFATE
  6. OMEPRAZOLE. [Concomitant]
     Active Substance: OMEPRAZOLE
     Route: 048
  7. LEVETIRACETAM. [Concomitant]
     Active Substance: LEVETIRACETAM
     Dosage: 200 MG, QD DAYS 8 - 21
     Route: 048
     Dates: start: 20160629
  8. PROCTOMED [Concomitant]
  9. DEXAMETHASONE. [Concomitant]
     Active Substance: DEXAMETHASONE
     Route: 048
  10. HYDROCODONE BITARTRATE AND ACETAMINOPHEN [Concomitant]
     Active Substance: ACETAMINOPHEN\HYDROCODONE BITARTRATE
     Route: 048
  11. FUROSEMIDE. [Concomitant]
     Active Substance: FUROSEMIDE
     Route: 048
  12. POTASSIUM CHLORIDE. [Concomitant]
     Active Substance: POTASSIUM CHLORIDE
     Route: 048
  13. MATULANE [Suspect]
     Active Substance: PROCARBAZINE HYDROCHLORIDE
     Indication: NEOPLASM MALIGNANT
     Dosage: 200 MG, QD ON  DAYS 8-21
     Route: 048
     Dates: start: 20160629
  14. ONDANSETRON [Concomitant]
     Active Substance: ONDANSETRON
     Route: 048
  15. MAGNESIUM OXIDE. [Concomitant]
     Active Substance: MAGNESIUM OXIDE
     Route: 048
  16. BUMETANIDE. [Concomitant]
     Active Substance: BUMETANIDE
     Route: 048

REACTIONS (1)
  - Nausea [Unknown]

NARRATIVE: CASE EVENT DATE: 20160629
